FAERS Safety Report 5467267-2 (Version None)
Quarter: 2007Q3

REPORT INFORMATION
  Report Type: 
  Country: None (occurrence: None)
  Receive Date: 20070925
  Receipt Date: 20070919
  Transmission Date: 20080115
  Serious: Yes (Other)
  Sender: FDA-Public Use
  Company Number: US-ASTRAZENECA-2007UW22056

PATIENT
  Age: 53 Year
  Sex: Female
  Weight: 92.5 kg

DRUGS (5)
  1. FASLODEX [Suspect]
     Indication: BREAST CANCER METASTATIC
     Dates: start: 20050101
  2. CYMBALTA [Concomitant]
  3. LYRICA [Concomitant]
  4. AREDIA [Concomitant]
  5. INSULIN [Concomitant]

REACTIONS (1)
  - NEPHROLITHIASIS [None]
